FAERS Safety Report 5926379-7 (Version None)
Quarter: 2008Q4

REPORT INFORMATION
  Report Type: 
  Country: None (occurrence: None)
  Receive Date: 20081022
  Receipt Date: 20081014
  Transmission Date: 20090506
  Serious: Yes (Death)
  Sender: FDA-Public Use
  Company Number: GB-AMGEN-UK312348

PATIENT
  Sex: Male
  Weight: 101 kg

DRUGS (6)
  1. KINERET [Suspect]
     Indication: RHEUMATOID ARTHRITIS
     Dates: start: 20030915, end: 20031015
  2. PREDNISOLONE [Concomitant]
  3. CO-DYDRAMOL [Concomitant]
  4. DIDRONEL [Concomitant]
  5. HYPROMELLOSE [Concomitant]
  6. LANSOPRAZOLE [Concomitant]

REACTIONS (3)
  - CEREBRAL INFARCTION [None]
  - DEHYDRATION [None]
  - SEPSIS [None]
